FAERS Safety Report 12613604 (Version 1)
Quarter: 2016Q3

REPORT INFORMATION
  Report Type: Spontaneous
  Country: None (occurrence: None)
  Receive Date: 20160801
  Receipt Date: 20160801
  Transmission Date: 20161109
  Serious: Yes (Other)
  Sender: FDA-Public Use
  Company Number: None

PATIENT
  Age: 46 Year
  Weight: 79.38 kg

DRUGS (1)
  1. PAROXETINE. [Suspect]
     Active Substance: PAROXETINE
     Indication: DEPRESSION
     Route: 048

REACTIONS (20)
  - Abnormal behaviour [None]
  - Agitation [None]
  - Anxiety [None]
  - Aggression [None]
  - Depression [None]
  - Disorientation [None]
  - Mood swings [None]
  - Hostility [None]
  - Psychomotor hyperactivity [None]
  - Hyperhidrosis [None]
  - Impulsive behaviour [None]
  - Vomiting [None]
  - Crying [None]
  - Irritability [None]
  - Restlessness [None]
  - Nausea [None]
  - Influenza [None]
  - Nightmare [None]
  - Panic attack [None]
  - Insomnia [None]

NARRATIVE: CASE EVENT DATE: 20160719
